FAERS Safety Report 9236582 (Version 10)
Quarter: 2014Q3

REPORT INFORMATION
  Report Type: Report from Study
  Country: CA (occurrence: CA)
  Receive Date: 20130417
  Receipt Date: 20140704
  Transmission Date: 20150326
  Serious: Yes (Hospitalization, Other)
  Sender: FDA-Public Use
  Company Number: CA-ROCHE-1215228

PATIENT
  Age: 64 Year
  Sex: Female
  Weight: 106 kg

DRUGS (14)
  1. AMLODIPINE [Concomitant]
     Active Substance: AMLODIPINE BESYLATE
  2. BISOPROLOL [Concomitant]
     Active Substance: BISOPROLOL
  3. ACETYLSALICYLIC ACID [Concomitant]
     Active Substance: ASPIRIN
  4. ROSUVASTATIN [Concomitant]
     Active Substance: ROSUVASTATIN
  5. ACTEMRA [Suspect]
     Active Substance: TOCILIZUMAB
     Indication: RHEUMATOID ARTHRITIS
     Route: 042
     Dates: start: 2010
  6. FOSINOPRIL [Concomitant]
     Active Substance: FOSINOPRIL
  7. METFORMIN [Concomitant]
     Active Substance: METFORMIN HYDROCHLORIDE
  8. ACTEMRA [Suspect]
     Active Substance: TOCILIZUMAB
     Route: 042
     Dates: start: 20130411
  9. BUPROPION [Concomitant]
     Active Substance: BUPROPION
  10. SULFASALAZINE. [Concomitant]
     Active Substance: SULFASALAZINE
  11. ESOMEPRAZOLE [Concomitant]
     Active Substance: ESOMEPRAZOLE
  12. CALCITE [Concomitant]
     Active Substance: CALCIUM CARBONATE
  13. INDAPAMIDE. [Concomitant]
     Active Substance: INDAPAMIDE
  14. NASONEX [Concomitant]
     Active Substance: MOMETASONE FUROATE

REACTIONS (21)
  - Upper limb fracture [Recovered/Resolved]
  - Pain [Unknown]
  - Blood creatinine increased [Unknown]
  - Fatigue [Unknown]
  - Device dislocation [Unknown]
  - Bronchitis [Not Recovered/Not Resolved]
  - Ovarian cyst [Unknown]
  - Arthralgia [Unknown]
  - Pyrexia [Unknown]
  - Insomnia [Unknown]
  - Fall [Unknown]
  - Hypertension [Not Recovered/Not Resolved]
  - Heart rate decreased [Not Recovered/Not Resolved]
  - Arthralgia [Not Recovered/Not Resolved]
  - Diverticulitis [Recovering/Resolving]
  - Musculoskeletal pain [Unknown]
  - Pneumonia [Recovered/Resolved]
  - Hypertension [Unknown]
  - Blood thyroid stimulating hormone abnormal [Unknown]
  - Lower respiratory tract infection viral [Not Recovered/Not Resolved]
  - Mass [Not Recovered/Not Resolved]

NARRATIVE: CASE EVENT DATE: 2013
